FAERS Safety Report 6401050-6 (Version None)
Quarter: 2009Q4

REPORT INFORMATION
  Report Type: 
  Country: None (occurrence: None)
  Receive Date: 20091013
  Receipt Date: 20091013
  Transmission Date: 20100525
  Serious: Yes (Hospitalization)
  Sender: FDA-Public Use
  Company Number: None

PATIENT
  Age: 81 Year
  Sex: Male
  Weight: 99 kg

DRUGS (2)
  1. HEPARIN [Suspect]
     Indication: THROMBOSIS PROPHYLAXIS
     Dosage: 4000 UNITS BEFORE HD TREATMENT HEMODIALYSIS
     Dates: start: 20091007, end: 20091007
  2. OPTIFLUX DIALYSIS FILTER F 160-N FRESSNIUS [Suspect]
     Indication: THROMBOSIS PROPHYLAXIS
     Dosage: 1 FILTER NEW EACH TREATMENT HEMODIALYSIS
     Dates: start: 20090824, end: 20091007

REACTIONS (2)
  - CHEST DISCOMFORT [None]
  - RESPIRATORY DISTRESS [None]
